FAERS Safety Report 15948862 (Version 1)
Quarter: 2019Q1

REPORT INFORMATION
  Report Type: Spontaneous
  Country: US (occurrence: US)
  Receive Date: 20190212
  Receipt Date: 20190212
  Transmission Date: 20190417
  Serious: Yes (Other)
  Sender: FDA-Public Use
  Company Number: None

PATIENT
  Age: 68 Year
  Sex: Male
  Weight: 90.72 kg

DRUGS (1)
  1. LEVULAN KERASTICK [Suspect]
     Active Substance: AMINOLEVULINIC ACID HYDROCHLORIDE
     Indication: HYPERKERATOSIS
     Dosage: QUANTITY:11;APPLIED TO SURFACE, USUALLY THE SKIN
     Dates: start: 20180201, end: 20190111

REACTIONS (5)
  - Vitreous floaters [None]
  - Eye pain [None]
  - Dyschromatopsia [None]
  - Insomnia [None]
  - Corneal disorder [None]

NARRATIVE: CASE EVENT DATE: 20190111
